FAERS Safety Report 7009520-7 (Version None)
Quarter: 2010Q3

REPORT INFORMATION
  Report Type: 
  Country: None (occurrence: None)
  Receive Date: 20100923
  Receipt Date: 20100913
  Transmission Date: 20110219
  Serious: Yes (Other)
  Sender: FDA-Public Use
  Company Number: PHHY2010US61235

PATIENT
  Sex: Female

DRUGS (4)
  1. VALTURNA [Suspect]
     Indication: HYPERTENSION
     Dosage: QD
     Route: 048
  2. BYSTOLIC [Concomitant]
  3. NORVASC [Concomitant]
  4. EXELON [Concomitant]

REACTIONS (1)
  - HALLUCINATION [None]
